FAERS Safety Report 7217573-6 (Version None)
Quarter: 2010Q4

REPORT INFORMATION
  Report Type: 
  Country: None (occurrence: None)
  Receive Date: 20101126
  Receipt Date: 20101006
  Transmission Date: 20110411
  Serious: No
  Sender: FDA-Public Use
  Company Number: 316238

PATIENT
  Age: 58 Year
  Sex: Male

DRUGS (4)
  1. LEVEMIR [Suspect]
     Indication: BLOOD GLUCOSE INCREASED
     Dosage: SUBCUTANEOUS
     Route: 058
  2. LEVEMIR [Suspect]
     Indication: OBESITY
     Dosage: SUBCUTANEOUS
     Route: 058
  3. VICTOZA [Suspect]
     Indication: BLOOD GLUCOSE INCREASED
     Dosage: SUBCUTANEOUS
     Route: 058
  4. VICTOZA [Suspect]
     Indication: OBESITY
     Dosage: SUBCUTANEOUS
     Route: 058

REACTIONS (2)
  - BLOOD GLUCOSE INCREASED [None]
  - INCORRECT DOSE ADMINISTERED [None]
